FAERS Safety Report 7455573-1 (Version None)
Quarter: 2011Q2

REPORT INFORMATION
  Report Type: 
  Country: None (occurrence: None)
  Receive Date: 20110503
  Receipt Date: 20110428
  Transmission Date: 20111010
  Serious: Yes (Hospitalization)
  Sender: FDA-Public Use
  Company Number: JP-ROCHE-767052

PATIENT
  Sex: Female
  Weight: 146 kg

DRUGS (4)
  1. XELODA [Suspect]
     Indication: BREAST CANCER METASTATIC
     Dosage: NAME: XELODA 300
     Route: 048
     Dates: start: 20110121, end: 20110202
  2. TYKERB [Suspect]
     Route: 048
     Dates: start: 20110121, end: 20110318
  3. TYKERB [Suspect]
     Indication: BREAST CANCER METASTATIC
     Route: 048
  4. AROMASIN [Concomitant]
     Dosage: DOSAGE IS UNCERTAIN
     Route: 048
     Dates: start: 20110121

REACTIONS (3)
  - PARONYCHIA [None]
  - PALMAR-PLANTAR ERYTHRODYSAESTHESIA SYNDROME [None]
  - INTERSTITIAL LUNG DISEASE [None]
